FAERS Safety Report 8390260 (Version 2)
Quarter: 2012Q4

REPORT INFORMATION
  Report Type: 
  Country: BR (occurrence: BR)
  Receive Date: 20120203
  Receipt Date: 20121019
  Transmission Date: 20130627
  Serious: Yes (Hospitalization)
  Sender: FDA-Public Use
  Company Number: BR-ELI_LILLY_AND_COMPANY-BR201201007859

PATIENT
  Age: 49 None
  Sex: Female
  Weight: 92 kg

DRUGS (8)
  1. BYETTA [Suspect]
     Indication: BLOOD GLUCOSE ABNORMAL
     Dosage: 5 ug, qd
     Route: 065
  2. BYETTA [Suspect]
     Dosage: 10 ug, qd
     Route: 065
  3. MYFORTIC [Concomitant]
     Dosage: UNK, tid
     Route: 065
  4. PREDNISONE [Concomitant]
     Dosage: UNK, qd
     Route: 065
  5. APROVEL [Concomitant]
     Indication: BLOOD PRESSURE
     Dosage: UNK UNK, unknown
     Route: 065
  6. FLUOXETINE HYDROCHLORIDE [Concomitant]
     Indication: DEPRESSION
     Dosage: UNK, unknown
     Route: 065
  7. RIVOTRIL [Concomitant]
     Dosage: UNK, unknown
     Route: 065
  8. GLIFAGE [Concomitant]
     Dosage: UNK, unknown
     Route: 065

REACTIONS (2)
  - Diabetes mellitus [Recovered/Resolved]
  - Inappropriate schedule of drug administration [Unknown]
